FAERS Safety Report 16024834 (Version 4)
Quarter: 2019Q4

REPORT INFORMATION
  Report Type: Spontaneous
  Country: US (occurrence: US)
  Receive Date: 20190301
  Receipt Date: 20191024
  Transmission Date: 20200122
  Serious: Yes (Hospitalization, Disabling, Other)
  Sender: FDA-Public Use
  Company Number: US-ASTRAZENECA-2018SF26317

PATIENT
  Age: 600 Month
  Sex: Female
  Weight: 63.5 kg

DRUGS (57)
  1. PREVACID 24 HR [Suspect]
     Active Substance: LANSOPRAZOLE
     Indication: GASTROOESOPHAGEAL REFLUX DISEASE
     Route: 065
     Dates: start: 20160901, end: 20161231
  2. COREG [Concomitant]
     Active Substance: CARVEDILOL
  3. ALKA-SELTZER [Concomitant]
     Active Substance: ANHYDROUS CITRIC ACID\ASPIRIN\SODIUM BICARBONATE
     Dates: start: 201511
  4. ROSUVASTATIN. [Concomitant]
     Active Substance: ROSUVASTATIN
  5. METHOCARBAMOL. [Concomitant]
     Active Substance: METHOCARBAMOL
  6. AMLODIPINE BESYLATE. [Concomitant]
     Active Substance: AMLODIPINE BESYLATE
  7. QVAR [Concomitant]
     Active Substance: BECLOMETHASONE DIPROPIONATE
  8. ERYTHROMYCIN. [Concomitant]
     Active Substance: ERYTHROMYCIN
  9. NEXIUM 24HR [Suspect]
     Active Substance: ESOMEPRAZOLE MAGNESIUM
     Indication: GASTROOESOPHAGEAL REFLUX DISEASE
     Route: 048
     Dates: start: 20160901, end: 20161231
  10. PREVACID 24 HR [Suspect]
     Active Substance: LANSOPRAZOLE
     Indication: GASTROOESOPHAGEAL REFLUX DISEASE
     Route: 065
     Dates: start: 20090518, end: 20171231
  11. TRAZODONE [Concomitant]
     Active Substance: TRAZODONE HYDROCHLORIDE
     Indication: DEPRESSION
     Route: 065
     Dates: start: 2016
  12. CARVEDILOL. [Concomitant]
     Active Substance: CARVEDILOL
  13. LOSARTAN. [Concomitant]
     Active Substance: LOSARTAN
  14. LEVEMIR [Concomitant]
     Active Substance: INSULIN DETEMIR
  15. CYCLOBENZAPRINE. [Concomitant]
     Active Substance: CYCLOBENZAPRINE
  16. AMOXICILLIN. [Concomitant]
     Active Substance: AMOXICILLIN
  17. NABUMETONE. [Concomitant]
     Active Substance: NABUMETONE
  18. FLUVIRIN NOS [Concomitant]
     Active Substance: INFLUENZA VIRUS VACCINE
  19. XIFAXAN [Concomitant]
     Active Substance: RIFAXIMIN
  20. NEXIUM [Suspect]
     Active Substance: ESOMEPRAZOLE MAGNESIUM
     Indication: GASTROOESOPHAGEAL REFLUX DISEASE
     Route: 048
     Dates: start: 20150319, end: 20150419
  21. PROTONIX [Concomitant]
     Active Substance: PANTOPRAZOLE SODIUM
  22. MIRTAZAPINE. [Concomitant]
     Active Substance: MIRTAZAPINE
  23. VENTOLIN [Concomitant]
     Active Substance: ALBUTEROL SULFATE
     Indication: RESPIRATION ABNORMAL
     Route: 065
     Dates: start: 2016
  24. TOBRAMYCIN. [Concomitant]
     Active Substance: TOBRAMYCIN
  25. HUMALOG [Concomitant]
     Active Substance: INSULIN LISPRO
     Indication: DIABETES MELLITUS
     Route: 065
     Dates: start: 2016
  26. LANTUS [Concomitant]
     Active Substance: INSULIN GLARGINE
  27. PREDNISOLONE. [Concomitant]
     Active Substance: PREDNISOLONE
  28. ASMANEX [Concomitant]
     Active Substance: MOMETASONE FUROATE
  29. BETHANECHOL [Concomitant]
     Active Substance: BETHANECHOL
  30. ONGLYZA [Concomitant]
     Active Substance: SAXAGLIPTIN HYDROCHLORIDE
  31. MIRTAZAPINE. [Concomitant]
     Active Substance: MIRTAZAPINE
     Indication: DEPRESSION
     Route: 065
     Dates: start: 2017
  32. ONDANSETRON HYDROCHLORIDE. [Concomitant]
     Active Substance: ONDANSETRON HYDROCHLORIDE
  33. PHENAZOPYRIDINE. [Concomitant]
     Active Substance: PHENAZOPYRIDINE
  34. ACETAMINOPHEN. [Concomitant]
     Active Substance: ACETAMINOPHEN
  35. DESVENLAFAXINE. [Concomitant]
     Active Substance: DESVENLAFAXINE
  36. NEXIUM 24HR [Suspect]
     Active Substance: ESOMEPRAZOLE MAGNESIUM
     Indication: GASTROOESOPHAGEAL REFLUX DISEASE
     Route: 048
     Dates: start: 20140328, end: 20171231
  37. FUROSEMIDE. [Concomitant]
     Active Substance: FUROSEMIDE
     Route: 065
     Dates: start: 2015
  38. METOCLOPRAMID [Concomitant]
     Active Substance: METOCLOPRAMIDE
  39. DICYCLOMINE [Concomitant]
     Active Substance: DICYCLOMINE HYDROCHLORIDE
  40. PRILOSEC OTC [Suspect]
     Active Substance: OMEPRAZOLE MAGNESIUM
     Route: 048
     Dates: start: 20160901, end: 20161231
  41. CALCIUM ACETATE. [Concomitant]
     Active Substance: CALCIUM ACETATE
  42. DESVENLAFAXINE. [Concomitant]
     Active Substance: DESVENLAFAXINE
  43. METOPROLOL SUCCINATE. [Concomitant]
     Active Substance: METOPROLOL SUCCINATE
  44. CIPROFLOXACIN. [Concomitant]
     Active Substance: CIPROFLOXACIN
  45. ESCITALOPRAM [Concomitant]
     Active Substance: ESCITALOPRAM OXALATE
  46. ELLIPTA [Concomitant]
  47. NEOMYCIN. [Concomitant]
     Active Substance: NEOMYCIN
  48. VICTOZA [Concomitant]
     Active Substance: LIRAGLUTIDE
  49. MIDODRINE [Concomitant]
     Active Substance: MIDODRINE
  50. PEPCID AC [Concomitant]
     Active Substance: FAMOTIDINE
     Dates: start: 201511
  51. PRISTIQ EXTENDED-RELEASE [Concomitant]
     Active Substance: DESVENLAFAXINE SUCCINATE
  52. ALBUTEROL. [Concomitant]
     Active Substance: ALBUTEROL
  53. NEXIUM 24HR [Suspect]
     Active Substance: ESOMEPRAZOLE MAGNESIUM
     Indication: GASTROOESOPHAGEAL REFLUX DISEASE
     Route: 048
     Dates: start: 20150319
  54. ATORVASTATIN [Concomitant]
     Active Substance: ATORVASTATIN
     Indication: BLOOD CHOLESTEROL INCREASED
     Route: 065
     Dates: start: 2016
  55. BUSPIRONE [Concomitant]
     Active Substance: BUSPIRONE HYDROCHLORIDE
  56. TRAMADOL. [Concomitant]
     Active Substance: TRAMADOL
     Indication: PAIN
     Route: 065
     Dates: start: 2015
  57. IPRATROPIUM [Concomitant]
     Active Substance: IPRATROPIUM

REACTIONS (7)
  - Hyperparathyroidism secondary [Unknown]
  - End stage renal disease [Not Recovered/Not Resolved]
  - Acute kidney injury [Unknown]
  - Chronic kidney disease [Not Recovered/Not Resolved]
  - Nephrogenic anaemia [Unknown]
  - Renal injury [Unknown]
  - Renal failure [Unknown]

NARRATIVE: CASE EVENT DATE: 201610
